FAERS Safety Report 18344283 (Version 2)
Quarter: 2020Q4

REPORT INFORMATION
  Report Type: Report from Study
  Country: US (occurrence: US)
  Receive Date: 20201005
  Receipt Date: 20201013
  Transmission Date: 20210114
  Serious: Yes (Death, Hospitalization, Other)
  Sender: FDA-Public Use
  Company Number: US-JNJFOC-20200923999

PATIENT
  Sex: Female
  Weight: 136.2 kg

DRUGS (22)
  1. AZITHROMYCIN ANHYDROUS. [Concomitant]
     Active Substance: AZITHROMYCIN ANHYDROUS
  2. LORAZEPAM. [Concomitant]
     Active Substance: LORAZEPAM
  3. METHIONINE [Concomitant]
     Active Substance: METHIONINE
  4. CETIRIZINE HCL [Concomitant]
     Active Substance: CETIRIZINE HYDROCHLORIDE
  5. AMOXAPINE. [Concomitant]
     Active Substance: AMOXAPINE
  6. SELEXIPAG [Suspect]
     Active Substance: SELEXIPAG
     Indication: PULMONARY ARTERIAL HYPERTENSION
     Route: 048
  7. VITAMIN B12 [Concomitant]
     Active Substance: CYANOCOBALAMIN
  8. LEVAQUIN [Concomitant]
     Active Substance: LEVOFLOXACIN
  9. TRAMADOL/APAP [Concomitant]
     Active Substance: ACETAMINOPHEN\TRAMADOL
     Dosage: 37.5-325
  10. PANTOPRAZOLE [Concomitant]
     Active Substance: PANTOPRAZOLE
  11. TOPIRAMATE. [Concomitant]
     Active Substance: TOPIRAMATE
  12. TOPIRAMATE. [Concomitant]
     Active Substance: TOPIRAMATE
  13. MACITENTAN [Suspect]
     Active Substance: MACITENTAN
     Indication: PULMONARY HYPERTENSION
     Route: 048
  14. FLUTICASONE PROPIONATE. [Concomitant]
     Active Substance: FLUTICASONE PROPIONATE
  15. LEVOTHYROXINE. [Concomitant]
     Active Substance: LEVOTHYROXINE
  16. LEVOFLOXACIN. [Concomitant]
     Active Substance: LEVOFLOXACIN
  17. VITAMIN D3 [Concomitant]
     Active Substance: CHOLECALCIFEROL
  18. GABAPENTIN. [Concomitant]
     Active Substance: GABAPENTIN
  19. IRON [Concomitant]
     Active Substance: IRON
  20. LUMIGAN [Concomitant]
     Active Substance: BIMATOPROST
  21. SIMVASTATIN. [Concomitant]
     Active Substance: SIMVASTATIN
  22. HYDROCODONE BITARTRATE. [Concomitant]
     Active Substance: HYDROCODONE BITARTRATE

REACTIONS (4)
  - Renal failure [Unknown]
  - Seizure [Unknown]
  - Blood pressure decreased [Unknown]
  - Death [Fatal]
